FAERS Safety Report 12618826 (Version 2)
Quarter: 2016Q3

REPORT INFORMATION
  Report Type: Spontaneous
  Country: FR (occurrence: FR)
  Receive Date: 20160803
  Receipt Date: 20160812
  Transmission Date: 20161109
  Serious: Yes (Hospitalization)
  Sender: FDA-Public Use
  Company Number: FR-JNJFOC-20160725856

PATIENT
  Age: 83 Year
  Sex: Female

DRUGS (11)
  1. VOGALENE [Interacting]
     Active Substance: METOPIMAZINE
     Indication: NAUSEA
     Route: 048
     Dates: start: 20160403, end: 20160404
  2. VOGALENE [Interacting]
     Active Substance: METOPIMAZINE
     Indication: VOMITING
     Route: 048
     Dates: start: 20160403, end: 20160404
  3. OXYNORM [Interacting]
     Active Substance: OXYCODONE HYDROCHLORIDE
     Indication: PAIN
     Dosage: IF NEEDED
     Route: 048
     Dates: start: 20160328, end: 20160407
  4. OXYNORMORO [Interacting]
     Active Substance: OXYCODONE
     Indication: PAIN
     Route: 048
     Dates: start: 20160402, end: 20160402
  5. VOGALENE [Interacting]
     Active Substance: METOPIMAZINE
     Indication: VOMITING
     Route: 054
     Dates: start: 20160404, end: 20160411
  6. DUROGESIC [Suspect]
     Active Substance: FENTANYL
     Indication: PAIN
     Route: 062
     Dates: start: 20160328, end: 20160405
  7. NISISCO [Concomitant]
     Active Substance: HYDROCHLOROTHIAZIDE\VALSARTAN
     Indication: HYPERTENSION
     Dosage: ONE IN THE MORNING
     Route: 048
  8. DAFALGAN [Concomitant]
     Active Substance: ACETAMINOPHEN
     Indication: TYPE 2 DIABETES MELLITUS
     Dosage: ONE IN THE MORNING (2-2-2)
     Route: 048
  9. OXYNORM [Interacting]
     Active Substance: OXYCODONE HYDROCHLORIDE
     Indication: PAIN
     Route: 048
     Dates: start: 20160407, end: 20160409
  10. ONGLYZA [Concomitant]
     Active Substance: SAXAGLIPTIN HYDROCHLORIDE
     Indication: TYPE 2 DIABETES MELLITUS
     Dosage: ONE IN THE MORNING
     Route: 048
  11. LOVENOX [Concomitant]
     Active Substance: ENOXAPARIN SODIUM
     Indication: PRODUCT USED FOR UNKNOWN INDICATION
     Dosage: ONE INJECTION IN THE EVENING
     Route: 058

REACTIONS (4)
  - Persecutory delusion [Recovered/Resolved]
  - Confusional state [Recovered/Resolved]
  - Drug interaction [Unknown]
  - Abnormal behaviour [Recovered/Resolved]

NARRATIVE: CASE EVENT DATE: 20160405
